FAERS Safety Report 15720067 (Version 1)
Quarter: 2018Q4

REPORT INFORMATION
  Report Type: Report from Study
  Country: BR (occurrence: BR)
  Receive Date: 20181213
  Receipt Date: 20181213
  Transmission Date: 20190205
  Serious: Yes (Other)
  Sender: FDA-Public Use
  Company Number: BR-MYLANLABS-2018M1091633

PATIENT
  Sex: Female
  Weight: 73 kg

DRUGS (1)
  1. CALCITONIN SALMON MYLAN [Suspect]
     Active Substance: CALCITONIN SALMON
     Indication: OSTEITIS DEFORMANS
     Dosage: 100 INTERNATIONAL UNIT PER MILLILITRE, QD
     Route: 045
     Dates: start: 1998

REACTIONS (19)
  - Disease recurrence [Unknown]
  - Fracture [Recovered/Resolved with Sequelae]
  - Lower limb fracture [Recovered/Resolved with Sequelae]
  - Pain [Unknown]
  - Osteitis deformans [Unknown]
  - Nervousness [Unknown]
  - Bone decalcification [Recovered/Resolved with Sequelae]
  - Movement disorder [Unknown]
  - Gait disturbance [Recovered/Resolved with Sequelae]
  - Upper limb fracture [Recovered/Resolved with Sequelae]
  - Rib fracture [Unknown]
  - Pelvic fracture [Recovered/Resolved with Sequelae]
  - Hypoacusis [Unknown]
  - Arthropathy [Recovered/Resolved with Sequelae]
  - Musculoskeletal discomfort [Recovered/Resolved with Sequelae]
  - Dysstasia [Unknown]
  - Road traffic accident [Unknown]
  - Femur fracture [Recovered/Resolved with Sequelae]
  - Limb asymmetry [Recovered/Resolved with Sequelae]

NARRATIVE: CASE EVENT DATE: 2004
